FAERS Safety Report 14011997 (Version 1)
Quarter: 2017Q3

REPORT INFORMATION
  Report Type: Spontaneous
  Country: FR (occurrence: FR)
  Receive Date: 20170926
  Receipt Date: 20170926
  Transmission Date: 20171128
  Serious: Yes (Other)
  Sender: FDA-Public Use
  Company Number: FR-MERCK KGAA-2027709

PATIENT
  Age: 69 Year
  Sex: Female

DRUGS (10)
  1. NOVOTHYROX [Suspect]
     Active Substance: LEVOTHYROXINE SODIUM
     Indication: POST PROCEDURAL HYPOTHYROIDISM
     Route: 065
  2. ALPRAZOLAM. [Concomitant]
     Active Substance: ALPRAZOLAM
     Dates: start: 201611
  3. ACETYLSALICYLIC ACID [Concomitant]
     Active Substance: ASPIRIN
     Dates: start: 201611
  4. PERINDOPRIL ARGININE [Concomitant]
     Active Substance: PERINDOPRIL ARGININE
     Dates: start: 201611
  5. PRASUGREL. [Concomitant]
     Active Substance: PRASUGREL
     Dates: start: 201611
  6. VENLAFAXINE [Concomitant]
     Active Substance: VENLAFAXINE HYDROCHLORIDE
     Dates: start: 201611
  7. OMEPRAZOLE. [Concomitant]
     Active Substance: OMEPRAZOLE
     Dates: start: 201611
  8. ATORVASTATIN CALCIUM. [Concomitant]
     Active Substance: ATORVASTATIN CALCIUM
     Dates: start: 201611
  9. TRINITRINE [Concomitant]
     Active Substance: NITROGLYCERIN
     Dates: start: 201611
  10. CARVEDILOL. [Concomitant]
     Active Substance: CARVEDILOL
     Dates: start: 201611

REACTIONS (5)
  - Night sweats [Unknown]
  - Arrhythmia [Not Recovered/Not Resolved]
  - Myalgia [Unknown]
  - Blood thyroid stimulating hormone decreased [Unknown]
  - Hot flush [Unknown]

NARRATIVE: CASE EVENT DATE: 2017
